FAERS Safety Report 15473669 (Version 2)
Quarter: 2018Q4

REPORT INFORMATION
  Report Type: Spontaneous
  Country: CL (occurrence: CL)
  Receive Date: 20181008
  Receipt Date: 20181015
  Transmission Date: 20190205
  Serious: Yes (Other)
  Sender: FDA-Public Use
  Company Number: CL-MYLANLABS-2018M1072071

PATIENT
  Age: 16 Year
  Sex: Male

DRUGS (13)
  1. CYTARABINE. [Suspect]
     Active Substance: CYTARABINE
     Indication: ACUTE LYMPHOCYTIC LEUKAEMIA
     Dosage: ON DAY 8 AND 29 AS A PART OF INDUCTION REGIMEN, ON DAYS 1, 8, 15 AND 22 AS A PART OF THE CONSOLID...
     Route: 037
  2. THIOGUANINE [Concomitant]
     Active Substance: THIOGUANINE
     Indication: ACUTE LYMPHOCYTIC LEUKAEMIA
     Dosage: ON DAYS 29 TO 42 OF LATE INTENSIFICATION I
     Route: 042
  3. DEXAMETHASONE. [Concomitant]
     Active Substance: DEXAMETHASONE
     Indication: ACUTE LYMPHOCYTIC LEUKAEMIA
     Dosage: FROM DAYS 1-4 (AS A PART OF INDUCTION REGIMEN).
  4. DAUNORUBICIN [Concomitant]
     Active Substance: DAUNORUBICIN
     Indication: ACUTE LYMPHOCYTIC LEUKAEMIA
     Dosage: ON DAYS 1, 8, 15, 22 (AS A PART OF INDUCTION REGIMEN)
  5. METHOTREXATE. [Concomitant]
     Active Substance: METHOTREXATE
     Indication: ACUTE LYMPHOCYTIC LEUKAEMIA
     Dosage: ON DAY 8 AND 29 (AS A PART OF INDUCTION REGIMEN) AND ON DAYS 1, 8, 15 AND 22 AS A PART OF THE CON...
     Route: 037
  6. VINCRISTINE [Concomitant]
     Active Substance: VINCRISTINE
     Indication: ACUTE LYMPHOCYTIC LEUKAEMIA
     Dosage: ON DAYS 1, 8, 15, 22 (AS A PART OF INDUCTION REGIMEN), ON DAYS 15, 22, 43 AND 50 AS A PART OF CON...
  7. ASPARAGINASE [Concomitant]
     Active Substance: ASPARAGINASE
     Indication: ACUTE LYMPHOCYTIC LEUKAEMIA
     Dosage: 6,000 U/M2 ON DAYS 15, 17, 19, 22, 24, 26 AND 29 AS APART OF INDUCTION REGIMEN, ON DAYS 15, 17, 1...
     Route: 030
  8. DOXORUBICIN [Concomitant]
     Active Substance: DOXORUBICIN
     Indication: ACUTE LYMPHOCYTIC LEUKAEMIA
     Dosage: DAYS 1, 8 AND 15 AS A PART OF LATE INTENSIFICATION I
  9. CYTARABINE. [Suspect]
     Active Substance: CYTARABINE
     Dosage: ON DAYS 1-4, 8-11, 29-32, ON DAYS 36-39 AS A PART OF THE CONSOLIDATION REGIMEN AND FOR 4 DAYS EAC...
  10. BETAMETHASONE. [Concomitant]
     Active Substance: BETAMETHASONE
     Indication: ACUTE LYMPHOCYTIC LEUKAEMIA
     Dosage: ON DAY 8 AND 29 (AS A PART OF INDUCTION REGIMEN), ON DAYS 1, 8, 15 AND 22 AS A PART OF THE CONSOL...
     Route: 037
  11. CYCLOPHOSPHAMIDE. [Concomitant]
     Active Substance: CYCLOPHOSPHAMIDE
     Indication: ACUTE LYMPHOCYTIC LEUKAEMIA
     Dosage: ON DAYS 1 AND 29 AS APART OF CONSOLIDATION REGIMEN, ON DAY 29 AS A PART OF LATE INTENSIFICATION I.
     Route: 042
  12. MERCAPTOPURINE. [Concomitant]
     Active Substance: MERCAPTOPURINE
     Indication: ACUTE LYMPHOCYTIC LEUKAEMIA
     Dosage: ON DAYS 1 TO 7 AND 15 TO 21 AS A PART OF INTERIM MAINTENANCE PHASE I
     Route: 048
  13. MERCAPTOPURINE. [Concomitant]
     Active Substance: MERCAPTOPURINE
     Dosage: AS A PART OF MAINTENANCE PHASE
     Route: 048

REACTIONS (7)
  - Paralysis [Unknown]
  - Urinary incontinence [Unknown]
  - Radiculopathy [Unknown]
  - Motor dysfunction [Unknown]
  - Paraplegia [Unknown]
  - Subacute combined cord degeneration [Unknown]
  - Myelopathy [Unknown]
